FAERS Safety Report 7888465-4 (Version None)
Quarter: 2011Q4

REPORT INFORMATION
  Report Type: 
  Country: None (occurrence: None)
  Receive Date: 20111103
  Receipt Date: 20111028
  Transmission Date: 20120403
  Serious: Yes (Other)
  Sender: FDA-Public Use
  Company Number: PHEH2011US08195

PATIENT
  Sex: Female

DRUGS (1)
  1. AREDIA [Suspect]

REACTIONS (14)
  - BRONCHITIS [None]
  - ANAEMIA [None]
  - NASAL CONGESTION [None]
  - HAEMATURIA [None]
  - OSTEOPENIA [None]
  - MUSCULOSKELETAL PAIN [None]
  - EAR PAIN [None]
  - DIARRHOEA [None]
  - COUGH [None]
  - TOOTHACHE [None]
  - ATROPHIC VULVOVAGINITIS [None]
  - BACK PAIN [None]
  - PHARYNGITIS [None]
  - ARTHRALGIA [None]
